FAERS Safety Report 9762793 (Version 2)
Quarter: 2014Q1

REPORT INFORMATION
  Report Type: Spontaneous
  Country: IT (occurrence: IT)
  Receive Date: 20131216
  Receipt Date: 20140129
  Transmission Date: 20141002
  Serious: Yes (Hospitalization)
  Sender: FDA-Public Use
  Company Number: IT-FRI-1000052181

PATIENT
  Age: 85 Year
  Sex: Male

DRUGS (16)
  1. FOSFOMYCIN [Suspect]
     Indication: URINARY TRACT INFECTION
     Dosage: 3 GRAM
     Route: 048
     Dates: start: 20130901, end: 20130910
  2. BACTRIM [Suspect]
     Indication: URINARY TRACT INFECTION
     Dosage: 2 DF (160/800 MG)
     Route: 048
     Dates: start: 20130901, end: 20130910
  3. GLURENOR [Suspect]
     Indication: DIABETES MELLITUS
     Dosage: 90 MG
     Route: 048
     Dates: start: 2009
  4. LANSOPRAZOLO [Concomitant]
  5. QUETIAPINE [Concomitant]
  6. LORAZEPAM [Concomitant]
  7. TAREG [Concomitant]
     Dosage: 80 MG
  8. NEBILOX [Concomitant]
     Dosage: 5 MG
  9. LASIX [Concomitant]
     Dosage: 25 MG
  10. EBIXA [Concomitant]
     Dosage: 20 MG
  11. FERROGRADE [Concomitant]
     Dosage: 105 MG
  12. LUVION [Concomitant]
     Dosage: 50 MG
  13. AMIODAR [Concomitant]
     Dosage: 200 MG
  14. ZYLORIC [Concomitant]
     Dosage: 300 MG
  15. HALCION [Concomitant]
     Dosage: 250 MCG
  16. AVODART [Concomitant]
     Dosage: 0.5 MG

REACTIONS (2)
  - Overdose [Unknown]
  - Hypoglycaemia [Unknown]
